FAERS Safety Report 15370241 (Version 1)
Quarter: 2018Q3

REPORT INFORMATION
  Report Type: Spontaneous
  Country: US (occurrence: US)
  Receive Date: 20180904
  Receipt Date: 20180904
  Transmission Date: 20181010
  Serious: Yes (Disabling)
  Sender: FDA-Public Use
  Company Number: None

PATIENT
  Age: 54 Year
  Sex: Male
  Weight: 69.75 kg

DRUGS (1)
  1. LEVOFLOXACIN. [Suspect]
     Active Substance: LEVOFLOXACIN
     Indication: SINUSITIS
     Route: 048
     Dates: start: 20180412, end: 20180413

REACTIONS (10)
  - Paraesthesia [None]
  - Tendon pain [None]
  - Musculoskeletal stiffness [None]
  - Pain in extremity [None]
  - Weight bearing difficulty [None]
  - Quality of life decreased [None]
  - Neuropathy peripheral [None]
  - Gait disturbance [None]
  - Tendon disorder [None]
  - Pain [None]

NARRATIVE: CASE EVENT DATE: 20180414
